FAERS Safety Report 7552329-6 (Version None)
Quarter: 2011Q2

REPORT INFORMATION
  Report Type: 
  Country: None (occurrence: None)
  Receive Date: 20110616
  Receipt Date: 20050412
  Transmission Date: 20111010
  Serious: Yes (Hospitalization)
  Sender: FDA-Public Use
  Company Number: PHHO2005JP04561

PATIENT
  Sex: Female
  Weight: 48 kg

DRUGS (4)
  1. DIOVAN [Suspect]
     Indication: HYPERTENSION
     Dosage: 80 MG, QD
     Route: 048
     Dates: start: 20021105
  2. WYTENS [Concomitant]
     Indication: HYPERTENSION
     Dosage: UNKNOWN
  3. CONIEL [Concomitant]
     Indication: HYPERTENSION
     Dosage: UNKNOWN
  4. DOXAZOSIN MESYLATE [Concomitant]
     Indication: HYPERTENSION
     Dosage: UNKNOWN

REACTIONS (5)
  - CEREBRAL INFARCTION [None]
  - TRANSIENT ISCHAEMIC ATTACK [None]
  - DIZZINESS [None]
  - PARKINSONISM [None]
  - AMAUROSIS [None]
